FAERS Safety Report 8971214 (Version 1)
Quarter: 2012Q4

REPORT INFORMATION
  Report Type: Report from Study
  Country: US (occurrence: US)
  Receive Date: 20121217
  Receipt Date: 20121217
  Transmission Date: 20130627
  Serious: Yes (Life-Threatening)
  Sender: FDA-Public Use
  Company Number: US-GLAXOSMITHKLINE-A1005413A

PATIENT
  Age: 65 Year
  Sex: Male
  Weight: 67.1 kg

DRUGS (1)
  1. ZANAMIVIR [Suspect]
     Indication: H1N1 INFLUENZA
     Dosage: 250MG Twice per day
     Dates: start: 20121204

REACTIONS (1)
  - Respiratory distress [Not Recovered/Not Resolved]
